FAERS Safety Report 16388342 (Version 1)
Quarter: 2019Q2

REPORT INFORMATION
  Report Type: Spontaneous
  Country: US (occurrence: US)
  Receive Date: 20190429
  Receipt Date: 20190429
  Transmission Date: 20190711
  Serious: No
  Sender: FDA-Public Use
  Company Number: None

PATIENT
  Age: 79 Year
  Sex: Male

DRUGS (1)
  1. TADALAFIL TAB 20MG [Suspect]
     Active Substance: TADALAFIL
     Dates: start: 201804

REACTIONS (2)
  - Dizziness [None]
  - Product dose omission [None]

NARRATIVE: CASE EVENT DATE: 20190422
